FAERS Safety Report 8288156-4 (Version None)
Quarter: 2012Q2

REPORT INFORMATION
  Report Type: 
  Country: None (occurrence: None)
  Receive Date: 20120416
  Receipt Date: 20120406
  Transmission Date: 20120825
  Serious: No
  Sender: FDA-Public Use
  Company Number: US-B.I. PHARMACEUTICALS,INC./RIDGEFIELD-2012-BP-06502BP

PATIENT
  Sex: Male

DRUGS (6)
  1. SPIRIVA [Suspect]
     Indication: CHRONIC OBSTRUCTIVE PULMONARY DISEASE
     Dosage: 18 MCG
     Route: 055
     Dates: end: 20120101
  2. ATIVAN [Concomitant]
  3. SYMBICORT [Concomitant]
  4. ATENOLOL [Concomitant]
  5. PAXIL [Concomitant]
  6. ALBUTEROL [Concomitant]

REACTIONS (1)
  - DYSPNOEA [None]
